FAERS Safety Report 25709233 (Version 1)
Quarter: 2025Q3

REPORT INFORMATION
  Report Type: Spontaneous
  Country: US (occurrence: US)
  Receive Date: 20250821
  Receipt Date: 20250821
  Transmission Date: 20251020
  Serious: Yes (Other)
  Sender: SANOFI AVENTIS
  Company Number: US-DialogSolutions-SAAVPROD-PI809551-C1

PATIENT
  Age: 43 Year
  Sex: Female

DRUGS (2)
  1. THYMOGLOBULIN [Suspect]
     Active Substance: LAPINE T-LYMPHOCYTE IMMUNE GLOBULIN
     Indication: End stage renal disease
  2. THYMOGLOBULIN [Suspect]
     Active Substance: LAPINE T-LYMPHOCYTE IMMUNE GLOBULIN
     Indication: IgA nephropathy

REACTIONS (8)
  - Glomerulonephritis minimal lesion [Recovering/Resolving]
  - Renal tubular injury [Recovering/Resolving]
  - Fluid retention [Recovering/Resolving]
  - Oedema peripheral [Recovering/Resolving]
  - Proteinuria [Recovering/Resolving]
  - Cytomegalovirus viraemia [Recovered/Resolved]
  - Nephropathy [Recovering/Resolving]
  - COVID-19 [Recovered/Resolved]
